FAERS Safety Report 7314021-2 (Version None)
Quarter: 2011Q1

REPORT INFORMATION
  Report Type: 
  Country: None (occurrence: None)
  Receive Date: 20110225
  Receipt Date: 20110216
  Transmission Date: 20110831
  Serious: Yes (Hospitalization)
  Sender: FDA-Public Use
  Company Number: AU-JNJFOC-20110205869

PATIENT
  Sex: Female

DRUGS (7)
  1. SIMPONI [Suspect]
     Indication: PRODUCT USED FOR UNKNOWN INDICATION
     Route: 058
  2. MIRTAZAPINE [Concomitant]
  3. PARIET [Concomitant]
  4. WARFARIN SODIUM [Concomitant]
  5. LIPEX [Concomitant]
  6. COVERSYL [Concomitant]
  7. WARFARIN SODIUM [Concomitant]

REACTIONS (2)
  - LYMPHADENOPATHY [None]
  - PULMONARY EMBOLISM [None]
